FAERS Safety Report 18955508 (Version 2)
Quarter: 2021Q1

REPORT INFORMATION
  Report Type: Other
  Country: JP (occurrence: JP)
  Receive Date: 20210301
  Receipt Date: 20210324
  Transmission Date: 20210420
  Serious: No
  Sender: FDA-Public Use
  Company Number: JP-SUNOVION-2021DSP002287

PATIENT
  Age: 19 Year
  Sex: Female

DRUGS (3)
  1. LONASEN [Suspect]
     Active Substance: BLONANSERIN
     Indication: SCHIZOPHRENIA
     Dosage: 20 MG, QD
     Route: 062
  2. LONASEN [Suspect]
     Active Substance: BLONANSERIN
     Indication: SCHIZOPHRENIA
     Dosage: UNK
     Route: 048
  3. ESZOPICLONE. [Suspect]
     Active Substance: ESZOPICLONE
     Indication: PRODUCT USED FOR UNKNOWN INDICATION
     Dosage: 2 MG, QD
     Route: 048

REACTIONS (5)
  - Psychiatric symptom [Unknown]
  - Gastroenteritis [Unknown]
  - Overdose [Unknown]
  - Off label use [Unknown]
  - Hyperprolactinaemia [Unknown]
